FAERS Safety Report 7655737-8 (Version None)
Quarter: 2011Q3

REPORT INFORMATION
  Report Type: 
  Country: None (occurrence: None)
  Receive Date: 20110729
  Receipt Date: 20110715
  Transmission Date: 20111222
  Serious: Yes (Hospitalization, Other)
  Sender: FDA-Public Use
  Company Number: 2011MA007941

PATIENT
  Age: 21 Year
  Sex: Female

DRUGS (3)
  1. ENTONOX [Concomitant]
  2. METOCLOPRAMIDE [Suspect]
     Indication: NAUSEA
     Dosage: 10 MG;X1;IV
     Route: 042
     Dates: start: 20100701, end: 20100701
  3. MORPHINE SULFATE [Suspect]
     Indication: BACK PAIN
     Dosage: 5 MG;IV
     Route: 042
     Dates: start: 20100701, end: 20100701

REACTIONS (3)
  - LOCAL REACTION [None]
  - NAUSEA [None]
  - INFUSION SITE HYPERSENSITIVITY [None]
